FAERS Safety Report 21915842 (Version 1)
Quarter: 2023Q1

REPORT INFORMATION
  Report Type: Spontaneous
  Country: BE (occurrence: BE)
  Receive Date: 20230126
  Receipt Date: 20230126
  Transmission Date: 20230418
  Serious: Yes (Other)
  Sender: FDA-Public Use
  Company Number: BE-FreseniusKabi-FK202300515

PATIENT
  Age: 29 Year
  Sex: Female
  Weight: 80 kg

DRUGS (3)
  1. PACLITAXEL [Suspect]
     Active Substance: PACLITAXEL
     Indication: Breast cancer
     Dosage: 147 MG, WEEKLY
     Route: 042
     Dates: start: 20221230
  2. PACLITAXEL [Suspect]
     Active Substance: PACLITAXEL
     Dosage: 147 MG, WEEKLY
     Route: 042
     Dates: end: 20230106
  3. CARBOPLATIN [Concomitant]
     Active Substance: CARBOPLATIN
     Indication: Breast cancer
     Dosage: 225 MG IN 30 MINUTES
     Route: 042

REACTIONS (4)
  - Hypersensitivity [Recovered/Resolved]
  - Rash [Recovered/Resolved]
  - Dyspnoea [Recovered/Resolved]
  - Chest discomfort [Recovered/Resolved]

NARRATIVE: CASE EVENT DATE: 20230106
